FAERS Safety Report 10173237 (Version 1)
Quarter: 2014Q2

REPORT INFORMATION
  Report Type: Spontaneous
  Country: US (occurrence: None)
  Receive Date: 20140514
  Receipt Date: 20140514
  Transmission Date: 20141212
  Serious: Yes (Hospitalization)
  Sender: FDA-Public Use
  Company Number: None

PATIENT
  Age: 51 Year
  Sex: Female

DRUGS (5)
  1. TECFIDERA 240MG BIOGEN [Suspect]
     Indication: MULTIPLE SCLEROSIS
     Route: 048
     Dates: start: 20140423, end: 20140512
  2. LANTUS [Concomitant]
  3. ACTOS [Concomitant]
  4. METFORMIN [Concomitant]
  5. LIPITOR [Concomitant]

REACTIONS (1)
  - Multiple sclerosis relapse [None]
